FAERS Safety Report 23235615 (Version 4)
Quarter: 2024Q1

REPORT INFORMATION
  Report Type: Spontaneous
  Country: US (occurrence: US)
  Receive Date: 20231128
  Receipt Date: 20240312
  Transmission Date: 20240409
  Serious: No
  Sender: FDA-Public Use
  Company Number: US-PFIZER INC-PV202300188262

PATIENT
  Age: 67 Year
  Sex: Female

DRUGS (1)
  1. IBRANCE [Suspect]
     Active Substance: PALBOCICLIB
     Dosage: 125 MG, DAILY [1 TABLET BY MOUTH DAILY]
     Route: 048

REACTIONS (3)
  - Gait inability [Unknown]
  - Skin ulcer [Unknown]
  - Pain in extremity [Unknown]
